FAERS Safety Report 8742992 (Version 3)
Quarter: 2012Q4

REPORT INFORMATION
  Report Type: 
  Country: JP (occurrence: JP)
  Receive Date: 20120824
  Receipt Date: 20121008
  Transmission Date: 20130627
  Serious: No
  Sender: FDA-Public Use
  Company Number: JP-JNJFOC-20120806079

PATIENT
  Age: 50 Year
  Sex: Female

DRUGS (2)
  1. DUROTEP MT [Suspect]
     Indication: PAIN
     Route: 062
  2. DUROTEP MT [Suspect]
     Indication: PAIN
     Route: 062

REACTIONS (3)
  - Nausea [Recovered/Resolved]
  - Incorrect drug administration duration [Unknown]
  - Headache [Recovered/Resolved]
